FAERS Safety Report 7724355-5 (Version None)
Quarter: 2011Q3

REPORT INFORMATION
  Report Type: 
  Country: None (occurrence: None)
  Receive Date: 20110901
  Receipt Date: 20110823
  Transmission Date: 20111222
  Serious: Yes (Death, Hospitalization)
  Sender: FDA-Public Use
  Company Number: CA-JNJFOC-20110801695

PATIENT
  Sex: Male

DRUGS (3)
  1. ANTIBIOTICS [Concomitant]
     Indication: NASOPHARYNGITIS
  2. STELARA [Suspect]
     Indication: PSORIASIS
     Route: 058
     Dates: start: 20100406
  3. ANTIBIOTICS [Concomitant]
     Indication: INFECTION

REACTIONS (3)
  - ASTHENIA [None]
  - DEATH [None]
  - WEIGHT DECREASED [None]
